FAERS Safety Report 23786027 (Version 3)
Quarter: 2024Q2

REPORT INFORMATION
  Report Type: Report from Study
  Country: US (occurrence: US)
  Receive Date: 20240426
  Receipt Date: 20240618
  Transmission Date: 20240717
  Serious: Yes (Hospitalization, Other)
  Sender: FDA-Public Use
  Company Number: US-TAKEDA-2024TUS038715

PATIENT
  Age: 56 Year
  Sex: Male
  Weight: 71 kg

DRUGS (7)
  1. LANADELUMAB [Suspect]
     Active Substance: LANADELUMAB
     Indication: Immune system disorder
     Dosage: 300 MILLIGRAM, Q2WEEKS
     Route: 058
     Dates: start: 20240113
  2. NICODERM CQ [Concomitant]
     Active Substance: NICOTINE
  3. ELIQUIS [Concomitant]
     Active Substance: APIXABAN
  4. METRONIDAZOLE [Concomitant]
     Active Substance: METRONIDAZOLE
  5. HYDROCHLOROTHIAZIDE\TRIAMTERENE [Concomitant]
     Active Substance: HYDROCHLOROTHIAZIDE\TRIAMTERENE
  6. KETOCONAZOLE [Concomitant]
     Active Substance: KETOCONAZOLE
  7. VERAPAMIL [Concomitant]
     Active Substance: VERAPAMIL HYDROCHLORIDE

REACTIONS (5)
  - Kidney infection [Unknown]
  - COVID-19 [Unknown]
  - Urinary tract infection [Unknown]
  - Weight decreased [Unknown]
  - Infection [Not Recovered/Not Resolved]

NARRATIVE: CASE EVENT DATE: 20240408
